FAERS Safety Report 8265720-X (Version None)
Quarter: 2012Q2

REPORT INFORMATION
  Report Type: 
  Country: None (occurrence: None)
  Receive Date: 20120406
  Receipt Date: 20120329
  Transmission Date: 20120825
  Serious: Yes (Other)
  Sender: FDA-Public Use
  Company Number: US-VERTEX PHARMACEUTICALS INC.-AE-2011-004083

PATIENT
  Sex: Male
  Weight: 88 kg

DRUGS (3)
  1. PEG-INTRON [Concomitant]
     Indication: HEPATITIS C
     Dates: start: 20110201
  2. RIBAVRIN [Concomitant]
     Indication: HEPATITIS C
     Dates: start: 20110201
  3. INCIVEK [Suspect]
     Indication: HEPATITIS C
     Route: 048
     Dates: start: 20110622, end: 20110901

REACTIONS (8)
  - RASH PRURITIC [None]
  - OEDEMA PERIPHERAL [None]
  - SEGMENTED HYALINISING VASCULITIS [None]
  - IMPAIRED HEALING [None]
  - ABDOMINAL PAIN [None]
  - PYREXIA [None]
  - DRUG RASH WITH EOSINOPHILIA AND SYSTEMIC SYMPTOMS [None]
  - ARTHRALGIA [None]
